FAERS Safety Report 8927769 (Version 1)
Quarter: 2012Q4

REPORT INFORMATION
  Report Type: 
  Country: IT (occurrence: IT)
  Receive Date: 20121127
  Receipt Date: 20121127
  Transmission Date: 20130627
  Serious: Yes (Hospitalization)
  Sender: FDA-Public Use
  Company Number: PHHY2012IT107368

PATIENT
  Age: 87 Year
  Sex: Female

DRUGS (4)
  1. DICLOFENAC [Suspect]
     Indication: ARTHRALGIA
     Dosage: 2 DF, UNK
     Route: 048
     Dates: start: 20121113, end: 20121114
  2. PEPTAZOL [Concomitant]
     Dosage: 40 mg, UNK
     Route: 048
  3. TAVOR (FLUCONAZOLE) [Concomitant]
  4. FOLINA [Concomitant]

REACTIONS (3)
  - Acute abdomen [Unknown]
  - Abdominal pain lower [Unknown]
  - Abdominal pain upper [Unknown]
